FAERS Safety Report 8984209 (Version 17)
Quarter: 2016Q3

REPORT INFORMATION
  Report Type: Report from Study
  Country: CA (occurrence: CA)
  Receive Date: 20121226
  Receipt Date: 20160916
  Transmission Date: 20161109
  Serious: Yes (Other)
  Sender: FDA-Public Use
  Company Number: PHHY2012CA116361

PATIENT
  Sex: Male

DRUGS (4)
  1. SANDOSTATIN LAR DEPOT [Suspect]
     Active Substance: OCTREOTIDE ACETATE
     Indication: NEUROENDOCRINE TUMOUR
     Dosage: 50 MG, QMO (EVERY 4 WEEKS)
     Route: 030
     Dates: start: 2008
  2. SANDOSTATIN LAR DEPOT [Suspect]
     Active Substance: OCTREOTIDE ACETATE
     Dosage: 60 MG,  TIW (EVERY 3 WEEKS)
     Route: 030
     Dates: start: 20160108
  3. AFINITOR [Suspect]
     Active Substance: EVEROLIMUS
     Indication: NEUROENDOCRINE TUMOUR
     Dosage: 10 MG, QD
     Route: 048
     Dates: start: 20120829
  4. AFINITOR [Suspect]
     Active Substance: EVEROLIMUS
     Dosage: 10 MG
     Route: 048
     Dates: start: 201211

REACTIONS (26)
  - Respiratory disorder [Unknown]
  - Flushing [Recovering/Resolving]
  - Drug administration error [Unknown]
  - Dyspnoea [Recovering/Resolving]
  - Hot flush [Unknown]
  - Malaise [Unknown]
  - Stress [Unknown]
  - Injection site inflammation [Unknown]
  - Product quality issue [Unknown]
  - Diarrhoea [Unknown]
  - Headache [Unknown]
  - Dyspnoea exertional [Unknown]
  - Wrong technique in product usage process [Unknown]
  - Pain [Unknown]
  - Rhonchi [Unknown]
  - Inappropriate schedule of drug administration [Unknown]
  - Asthma [Recovered/Resolved]
  - Acne [Unknown]
  - Syringe issue [Unknown]
  - Drug ineffective [Unknown]
  - Oedema [Unknown]
  - Needle issue [Unknown]
  - Fatigue [Recovering/Resolving]
  - Depression [Unknown]
  - Underdose [Unknown]
  - Injection site hypersensitivity [Unknown]

NARRATIVE: CASE EVENT DATE: 2016
